FAERS Safety Report 9656057 (Version 2)
Quarter: 2014Q1

REPORT INFORMATION
  Report Type: Spontaneous
  Country: IE (occurrence: IE)
  Receive Date: 20131030
  Receipt Date: 20140103
  Transmission Date: 20141002
  Serious: Yes (Hospitalization, Other)
  Sender: FDA-Public Use
  Company Number: IE-JNJFOC-20131015394

PATIENT
  Age: 50 Year
  Sex: Male

DRUGS (2)
  1. HALDOL [Suspect]
     Indication: SCHIZOPHRENIA
     Route: 030
     Dates: start: 20131017, end: 20131018
  2. LORAZEPAM [Concomitant]
     Indication: AGITATION
     Route: 065
     Dates: start: 20131017

REACTIONS (1)
  - Electrocardiogram QT prolonged [Recovered/Resolved]
